FAERS Safety Report 5627933-2 (Version None)
Quarter: 2008Q1

REPORT INFORMATION
  Report Type: 
  Country: None (occurrence: None)
  Receive Date: 20080215
  Receipt Date: 20080207
  Transmission Date: 20080703
  Serious: Yes (Other)
  Sender: FDA-Public Use
  Company Number: US-JNJFOC-20071003869

PATIENT
  Sex: Female
  Weight: 67.59 kg

DRUGS (3)
  1. TOPAMAX [Suspect]
     Dosage: 25 MG AM; 25 MG PM
     Route: 048
  2. TOPAMAX [Suspect]
     Indication: MIGRAINE PROPHYLAXIS
     Dosage: AM
     Route: 048
  3. ZOMIG [Concomitant]
     Indication: HEADACHE

REACTIONS (6)
  - ANHIDROSIS [None]
  - ANXIETY [None]
  - DYSPNOEA [None]
  - INSOMNIA [None]
  - PALPITATIONS [None]
  - TACHYCARDIA [None]
